FAERS Safety Report 9684217 (Version 2)
Quarter: 2013Q4

REPORT INFORMATION
  Report Type: Spontaneous
  Country: US (occurrence: US)
  Receive Date: 20131112
  Receipt Date: 20131127
  Transmission Date: 20140711
  Serious: Yes (Other)
  Sender: FDA-Public Use
  Company Number: US-GLAXOSMITHKLINE-A1048473A

PATIENT
  Age: 71 Year
  Sex: Female

DRUGS (13)
  1. VENTOLIN [Suspect]
     Indication: ASTHMA
     Dosage: 2PUFF VARIABLE DOSE
     Route: 055
  2. ADVAIR DISKUS [Concomitant]
  3. ALBUTEROL NEBULIZER [Concomitant]
  4. EVISTA [Concomitant]
  5. FORTEO [Concomitant]
  6. PRAVASTATIN [Concomitant]
  7. METOPROLOL [Concomitant]
  8. OMEPRAZOL [Concomitant]
  9. REMICADE [Concomitant]
  10. VITAMIN C [Concomitant]
  11. ASPIRIN [Concomitant]
  12. CALCIUM WITH VITAMIN D [Concomitant]
  13. TYLENOL [Concomitant]

REACTIONS (4)
  - Respiratory therapy [Not Recovered/Not Resolved]
  - Drug effect decreased [Not Recovered/Not Resolved]
  - Dyspnoea [Not Recovered/Not Resolved]
  - Seasonal allergy [Not Recovered/Not Resolved]
